FAERS Safety Report 14391453 (Version 1)
Quarter: 2018Q1

REPORT INFORMATION
  Report Type: Spontaneous
  Country: JP (occurrence: JP)
  Receive Date: 20180116
  Receipt Date: 20180116
  Transmission Date: 20180509
  Serious: Yes (Disabling)
  Sender: FDA-Public Use
  Company Number: JP-009507513-1712JPN001341J

PATIENT
  Age: 72 Year
  Sex: Male

DRUGS (7)
  1. GRAZYNA TABLETS 50MG [Suspect]
     Active Substance: GRAZOPREVIR
     Dosage: UNK
     Route: 048
     Dates: start: 201709, end: 201712
  2. ETIZOLAM [Concomitant]
     Active Substance: ETIZOLAM
     Dosage: UNK
     Route: 048
  3. ERELSA TABLETS 50MG [Suspect]
     Active Substance: ELBASVIR
     Dosage: UNK
     Route: 048
     Dates: start: 201709, end: 201712
  4. LIVALO [Concomitant]
     Active Substance: PITAVASTATIN CALCIUM
     Dosage: UNK
     Route: 048
  5. ASTOMIN [Concomitant]
     Active Substance: DIMEMORFAN
     Dosage: UNK
     Route: 048
  6. ROZEREM [Concomitant]
     Active Substance: RAMELTEON
     Dosage: UNK
     Route: 048
  7. ALFAROL [Concomitant]
     Active Substance: ALFACALCIDOL
     Dosage: UNK
     Route: 048

REACTIONS (3)
  - Malaise [Recovering/Resolving]
  - Liver function test increased [Not Recovered/Not Resolved]
  - Nausea [Recovering/Resolving]

NARRATIVE: CASE EVENT DATE: 201712
